FAERS Safety Report 4278554-8 (Version None)
Quarter: 2004Q1

REPORT INFORMATION
  Report Type: 
  Country: None (occurrence: None)
  Receive Date: 20040122
  Receipt Date: 20040106
  Transmission Date: 20041129
  Serious: Yes (Hospitalization)
  Sender: FDA-Public Use
  Company Number: 7150

PATIENT
  Age: 66 Year
  Sex: Male

DRUGS (4)
  1. LEUCOVORIN CALCIUM [Suspect]
     Indication: COLORECTAL CANCER
     Dosage: 500 MG/M2 WEEKLY
     Route: 042
     Dates: start: 20031029, end: 20031112
  2. CETUXIMAB [Suspect]
     Indication: COLORECTAL CANCER
     Dosage: 250 MG/M2 WEEKLY
     Route: 042
     Dates: start: 20031029, end: 20031112
  3. FLUOROURACIL [Suspect]
     Indication: COLORECTAL CANCER
     Dosage: 1500 MG/M2 WEEKLY
     Route: 042
     Dates: start: 20031029, end: 20031112
  4. IRINOTECAN [Suspect]
     Indication: COLORECTAL CANCER
     Dosage: 80 MG/M2 WEEKLY
     Route: 042
     Dates: start: 20031029, end: 20031112

REACTIONS (5)
  - DIARRHOEA [None]
  - DISORIENTATION [None]
  - LEUKOPENIA [None]
  - NAUSEA [None]
  - VOMITING [None]
